FAERS Safety Report 17223996 (Version 3)
Quarter: 2020Q1

REPORT INFORMATION
  Report Type: Spontaneous
  Country: BR (occurrence: BR)
  Receive Date: 20200102
  Receipt Date: 20200304
  Transmission Date: 20200409
  Serious: Yes (Other)
  Sender: FDA-Public Use
  Company Number: BR-AMGEN-BRASP2019217387

PATIENT
  Age: 80 Year
  Sex: Female

DRUGS (1)
  1. ENBREL [Suspect]
     Active Substance: ETANERCEPT
     Indication: RHEUMATOID ARTHRITIS
     Dosage: UNK
     Route: 065
     Dates: start: 2014

REACTIONS (10)
  - Dementia Alzheimer^s type [Not Recovered/Not Resolved]
  - Depression [Not Recovered/Not Resolved]
  - Underweight [Unknown]
  - Joint injury [Unknown]
  - Limb asymmetry [Unknown]
  - Sarcopenia [Unknown]
  - Mobility decreased [Unknown]
  - Mood altered [Unknown]
  - Increased appetite [Unknown]
  - Fall [Unknown]

NARRATIVE: CASE EVENT DATE: 2016
